FAERS Safety Report 14493325 (Version 1)
Quarter: 2018Q1

REPORT INFORMATION
  Report Type: Report from Study
  Country: US (occurrence: US)
  Receive Date: 20180206
  Receipt Date: 20180206
  Transmission Date: 20180509
  Serious: Yes (Hospitalization)
  Sender: FDA-Public Use
  Company Number: US-JNJFOC-20180111528

PATIENT
  Age: 84 Year
  Sex: Male

DRUGS (15)
  1. SYSTANE BALANCE [Concomitant]
     Active Substance: PROPYLENE GLYCOL
  2. TRAZODONE [Concomitant]
     Active Substance: TRAZODONE HYDROCHLORIDE
  3. CALCIUM CITRATE W/MAGNESIUM [Concomitant]
  4. ALLOPURINOL. [Concomitant]
     Active Substance: ALLOPURINOL
  5. IMBRUVICA [Suspect]
     Active Substance: IBRUTINIB
     Indication: CHRONIC LYMPHOCYTIC LEUKAEMIA
     Route: 048
     Dates: start: 20180105
  6. SYSTANE (HYPROMELLOSE 2910 (4000 MPA.S)) [Concomitant]
     Active Substance: HYPROMELLOSE 2910 (4000 MPA.S)
  7. ZYRTEC [Concomitant]
     Active Substance: CETIRIZINE HYDROCHLORIDE
  8. IMBRUVICA [Suspect]
     Active Substance: IBRUTINIB
     Indication: CHRONIC LYMPHOCYTIC LEUKAEMIA
     Route: 048
  9. TERAZOSIN [Concomitant]
     Active Substance: TERAZOSIN\TERAZOSIN HYDROCHLORIDE
  10. BACTRIM [Concomitant]
     Active Substance: SULFAMETHOXAZOLE\TRIMETHOPRIM
  11. SIMVASTATIN. [Concomitant]
     Active Substance: SIMVASTATIN
  12. DOCUSATE [Concomitant]
     Active Substance: DOCUSATE
  13. FINASTERIDE. [Concomitant]
     Active Substance: FINASTERIDE
  14. IMBRUVICA [Suspect]
     Active Substance: IBRUTINIB
     Indication: CHRONIC LYMPHOCYTIC LEUKAEMIA
     Route: 048
     Dates: start: 201712
  15. ACYCLOVIR. [Concomitant]
     Active Substance: ACYCLOVIR

REACTIONS (4)
  - Laboratory test abnormal [Unknown]
  - Contusion [Not Recovered/Not Resolved]
  - Decreased appetite [Not Recovered/Not Resolved]
  - Pleural effusion [Not Recovered/Not Resolved]

NARRATIVE: CASE EVENT DATE: 201712
